FAERS Safety Report 25628552 (Version 1)
Quarter: 2025Q3

REPORT INFORMATION
  Report Type: Spontaneous
  Country: US (occurrence: US)
  Receive Date: 20250731
  Receipt Date: 20250731
  Transmission Date: 20251020
  Serious: Yes (Other)
  Sender: AMGEN
  Company Number: US-AMGEN-USASP2025147388

PATIENT

DRUGS (3)
  1. PREDNISONE [Suspect]
     Active Substance: PREDNISONE
     Indication: Immunosuppressant drug therapy
     Dosage: 80 MILLIGRAM, BID, ON POSTOPERATIVE DAY 1
     Route: 048
  2. PREDNISONE [Suspect]
     Active Substance: PREDNISONE
     Dosage: 20 MILLIGRAM, QD, FROM POSTOPERATIVE DAYS 5 TO 14
     Route: 048
  3. METHYLPREDNISOLONE [Concomitant]
     Active Substance: METHYLPREDNISOLONE
     Route: 040

REACTIONS (10)
  - Cerebrovascular accident [Unknown]
  - Cardiac failure congestive [Unknown]
  - Diabetic retinopathy [Unknown]
  - Diabetic neuropathy [Unknown]
  - Hypoglycaemia [Unknown]
  - Coronary artery disease [Unknown]
  - Skin ulcer [Unknown]
  - Amputation [Unknown]
  - Hyperlipidaemia [Unknown]
  - Hypertension [Unknown]
